FAERS Safety Report 11430326 (Version 1)
Quarter: 2015Q3

REPORT INFORMATION
  Report Type: Spontaneous
  Country: US (occurrence: US)
  Receive Date: 20150828
  Receipt Date: 20150828
  Transmission Date: 20151125
  Serious: No
  Sender: FDA-Public Use
  Company Number: US-ROCHE-1251806

PATIENT
  Sex: Male

DRUGS (3)
  1. CELEBREX [Concomitant]
     Active Substance: CELECOXIB
     Indication: DEPRESSION
  2. PEGASYS [Suspect]
     Active Substance: PEGINTERFERON ALFA-2A
     Indication: HEPATITIS C
     Route: 065
  3. TRAMADOL. [Concomitant]
     Active Substance: TRAMADOL
     Indication: PAIN

REACTIONS (5)
  - Faeces discoloured [Unknown]
  - Tremor [Unknown]
  - Chest discomfort [Unknown]
  - Arthralgia [Unknown]
  - Feeling jittery [Unknown]
